FAERS Safety Report 17565381 (Version 2)
Quarter: 2020Q2

REPORT INFORMATION
  Report Type: Spontaneous
  Country: US (occurrence: US)
  Receive Date: 20200320
  Receipt Date: 20200508
  Transmission Date: 20200713
  Serious: No
  Sender: FDA-Public Use
  Company Number: US-PFIZER INC-2020119190

PATIENT
  Age: 55 Year
  Sex: Female

DRUGS (3)
  1. LYRICA [Suspect]
     Active Substance: PREGABALIN
     Dosage: 150 MG, 2X/DAY (LYRICA 150 MG EVERY 12 HRS)
  2. MORPHINE SULFATE. [Suspect]
     Active Substance: MORPHINE SULFATE
     Dosage: UNK UNK, 3X/DAY (MORPHINELR EVERY 8HRS)
  3. MORPHINE [Suspect]
     Active Substance: MORPHINE
     Dosage: UNK UNK, 2X/DAY (MORPHINEER EVERY 12HRS)

REACTIONS (1)
  - Insomnia [Unknown]
